FAERS Safety Report 4588154-8 (Version None)
Quarter: 2005Q1

REPORT INFORMATION
  Report Type: 
  Country: None (occurrence: None)
  Receive Date: 20050221
  Receipt Date: 20041108
  Transmission Date: 20050727
  Serious: No
  Sender: FDA-Public Use
  Company Number: PHEH2004US12043

PATIENT
  Age: 55 Year
  Sex: Male
  Weight: 83 kg

DRUGS (23)
  1. FEMARA [Concomitant]
     Indication: METASTASES TO BONE
     Dosage: 2.5 MG, QD
     Dates: start: 20010701
  2. SUDAFED 12 HOUR [Concomitant]
     Indication: POSTNASAL DRIP
     Dosage: 30 MG, PRN
     Route: 048
  3. PERCOCET [Concomitant]
     Route: 048
  4. OXYCONTIN [Concomitant]
     Route: 048
  5. VASOTEC [Concomitant]
     Route: 048
  6. SOMA [Concomitant]
  7. NEXIUM [Concomitant]
  8. ENALAPRIL MALEATE [Concomitant]
     Dosage: 20 MG, BID
     Route: 048
  9. NEURONTIN [Concomitant]
     Indication: HOT FLUSH
     Dosage: 300 MG, TID
     Route: 048
  10. PAXIL [Concomitant]
     Dosage: 40 MG, BID
     Route: 048
  11. VICODIN [Concomitant]
     Dosage: 5 MG, QID
     Route: 048
  12. CARAFATE [Concomitant]
     Route: 048
     Dates: end: 20041028
  13. PEPCID [Concomitant]
     Route: 048
  14. RESTORIL [Concomitant]
     Indication: INSOMNIA
     Dosage: 15 MG, QHS
     Route: 048
  15. ZOLEDRONATE [Concomitant]
     Indication: METASTASES TO BONE
     Dosage: 4 MG, QMO
  16. COMPAZINE [Concomitant]
     Dosage: 10 MG, PRN
     Route: 048
  17. ROXANOL [Concomitant]
     Indication: PAIN
     Dosage: 20 MG, PRN
     Route: 048
     Dates: end: 20041201
  18. HYDROCHLOROTHIAZIDE [Concomitant]
     Indication: OEDEMA
     Dosage: 25 MG, QD
     Route: 048
  19. GLEEVEC [Suspect]
     Indication: CHRONIC MYELOID LEUKAEMIA
     Dosage: NO TREATMENT
     Dates: start: 20040901, end: 20041001
  20. GLEEVEC [Suspect]
     Dosage: 100 MG, QD
     Route: 048
     Dates: start: 20041001
  21. GLEEVEC [Suspect]
     Dosage: 400 MG, QD
     Route: 048
     Dates: start: 20040614
  22. VALIUM [Concomitant]
     Indication: ANXIETY
     Dosage: 5 MG, BID
     Route: 048
  23. TYLENOL (CAPLET) [Concomitant]

REACTIONS (8)
  - ASTHENIA [None]
  - BONE PAIN [None]
  - DIZZINESS [None]
  - HYPERTENSION [None]
  - MYALGIA [None]
  - NAUSEA [None]
  - TREATMENT NONCOMPLIANCE [None]
  - VOMITING [None]
